APPROVED DRUG PRODUCT: CYCLOBENZAPRINE HYDROCHLORIDE
Active Ingredient: CYCLOBENZAPRINE HYDROCHLORIDE
Strength: 5MG
Dosage Form/Route: TABLET;ORAL
Application: A073144 | Product #002
Applicant: RISING PHARMA HOLDING INC
Approved: Feb 3, 2006 | RLD: No | RS: No | Type: DISCN